FAERS Safety Report 6615938-4 (Version None)
Quarter: 2010Q1

REPORT INFORMATION
  Report Type: 
  Country: None (occurrence: None)
  Receive Date: 20100305
  Receipt Date: 20100224
  Transmission Date: 20100710
  Serious: Yes (Other)
  Sender: FDA-Public Use
  Company Number: A0785929A

PATIENT
  Age: 64 Year
  Sex: Female
  Weight: 49.5 kg

DRUGS (2)
  1. PROMACTA [Suspect]
     Dosage: 50MG UNKNOWN
     Route: 048
     Dates: start: 20090417, end: 20100215
  2. PREDNISONE [Concomitant]

REACTIONS (3)
  - DIARRHOEA [None]
  - DRUG INEFFECTIVE [None]
  - HEADACHE [None]
